FAERS Safety Report 7167995-7 (Version None)
Quarter: 2010Q4

REPORT INFORMATION
  Report Type: 
  Country: None (occurrence: None)
  Receive Date: 20101216
  Receipt Date: 20101210
  Transmission Date: 20110411
  Serious: No
  Sender: FDA-Public Use
  Company Number: US-PFIZER INC-2010169431

PATIENT
  Sex: Male
  Weight: 72.562 kg

DRUGS (5)
  1. PRISTIQ [Suspect]
     Indication: DEPRESSION
     Dosage: 50 MG, UNK
     Route: 048
     Dates: start: 20090101
  2. PRISTIQ [Suspect]
     Dosage: 100MG DAILY
     Dates: start: 20100101
  3. TOPIRAMATE [Concomitant]
     Indication: HEADACHE
     Dosage: 200 MG, 1X/DAY
  4. AMITRIPTYLINE [Concomitant]
     Indication: POTENTIATING DRUG INTERACTION
     Dosage: 25 MG, 1X/DAY
  5. SUMATRIPTAN SUCCINATE [Concomitant]
     Indication: HEADACHE
     Dosage: 100 MG, AS NEEDED

REACTIONS (2)
  - LIPIDS DECREASED [None]
  - WEIGHT DECREASED [None]
